FAERS Safety Report 4362594-4 (Version None)
Quarter: 2004Q2

REPORT INFORMATION
  Report Type: 
  Country: None (occurrence: None)
  Receive Date: 20040521
  Receipt Date: 20030113
  Transmission Date: 20050107
  Serious: Yes (Hospitalization, Disabling, Other)
  Sender: FDA-Public Use
  Company Number: US-MERCK-0301USA01106

PATIENT
  Age: 40 Year
  Sex: Male
  Weight: 105 kg

DRUGS (6)
  1. CHLORPHENIRAMINE MALEATE AND PSEUDOEPHEDRINE HCL [Concomitant]
     Route: 065
  2. LISINOPRIL [Concomitant]
     Route: 065
  3. MECLIZINE [Concomitant]
     Route: 065
  4. ACIPHEX [Concomitant]
     Route: 065
  5. VIOXX [Suspect]
     Indication: POLYARTHRITIS
     Route: 048
     Dates: start: 20020708, end: 20020824
  6. VIOXX [Suspect]
     Indication: BURSITIS
     Route: 048
     Dates: start: 20020708, end: 20020824

REACTIONS (20)
  - BACK INJURY [None]
  - BENIGN PROSTATIC HYPERPLASIA [None]
  - BLADDER NECK SCLEROSIS [None]
  - CARDIOVASCULAR DISORDER [None]
  - CEREBROVASCULAR ACCIDENT [None]
  - CHEST PAIN [None]
  - DIZZINESS [None]
  - HAEMOLYSIS [None]
  - HAEMORRHOIDAL HAEMORRHAGE [None]
  - HYPERKALAEMIA [None]
  - HYPERLIPIDAEMIA [None]
  - HYPERTENSION [None]
  - LIVER FUNCTION TEST ABNORMAL [None]
  - PALPITATIONS [None]
  - RENAL FAILURE ACUTE [None]
  - RHEUMATOID ARTHRITIS [None]
  - RHINITIS ALLERGIC [None]
  - TOOTH ABSCESS [None]
  - URETHRAL STRICTURE [None]
  - VERTIGO [None]
